FAERS Safety Report 13693851 (Version 1)
Quarter: 2017Q2

REPORT INFORMATION
  Report Type: Spontaneous
  Country: US (occurrence: US)
  Receive Date: 20170627
  Receipt Date: 20170627
  Transmission Date: 20170830
  Serious: No
  Sender: FDA-Public Use
  Company Number: US-LNK INTERNATIONAL, INC.-2022538

PATIENT
  Age: 62 Year
  Sex: Female

DRUGS (1)
  1. BISACODYL 5 MG E.C. PINK TABLETS [Suspect]
     Active Substance: BISACODYL

REACTIONS (3)
  - Chest pain [None]
  - Musculoskeletal pain [None]
  - Neck pain [None]
